FAERS Safety Report 10301768 (Version 1)
Quarter: 2014Q3

REPORT INFORMATION
  Report Type: Spontaneous
  Country: US (occurrence: US)
  Receive Date: 20140714
  Receipt Date: 20140714
  Transmission Date: 20150326
  Serious: Yes (Hospitalization)
  Sender: FDA-Public Use
  Company Number: US-TEVA-493318USA

PATIENT
  Age: 70 Year
  Sex: Female

DRUGS (11)
  1. EFFEXOR [Concomitant]
     Active Substance: VENLAFAXINE HYDROCHLORIDE
  2. METOPROLOL [Concomitant]
     Active Substance: METOPROLOL
  3. LYRICA [Concomitant]
     Active Substance: PREGABALIN
  4. WARFARIN [Concomitant]
     Active Substance: WARFARIN
  5. FENTANYL. [Suspect]
     Active Substance: FENTANYL
     Indication: BREAKTHROUGH PAIN
     Dosage: 800 MILLIGRAM DAILY; AS NEEDED
     Dates: start: 2008
  6. POTASSIUM CHLORIDE. [Concomitant]
     Active Substance: POTASSIUM CHLORIDE
  7. LUNESTA [Concomitant]
     Active Substance: ESZOPICLONE
  8. FENTANYL. [Concomitant]
     Active Substance: FENTANYL
     Indication: RHEUMATOID ARTHRITIS
     Route: 062
  9. PREDNISONE. [Concomitant]
     Active Substance: PREDNISONE
  10. FENTANYL. [Concomitant]
     Active Substance: FENTANYL
     Indication: OSTEOMYELITIS
  11. DOXYCYCLINE. [Concomitant]
     Active Substance: DOXYCYCLINE

REACTIONS (1)
  - Osteomyelitis [Not Recovered/Not Resolved]

NARRATIVE: CASE EVENT DATE: 201401
